FAERS Safety Report 12946059 (Version 1)
Quarter: 2016Q4

REPORT INFORMATION
  Report Type: Spontaneous
  Country: SE (occurrence: SE)
  Receive Date: 20161116
  Receipt Date: 20161116
  Transmission Date: 20170207
  Serious: Yes (Other)
  Sender: FDA-Public Use
  Company Number: SE-ASTRAZENECA-2016SF17683

PATIENT
  Age: 41 Year
  Sex: Female

DRUGS (3)
  1. ATENOLOL. [Concomitant]
     Active Substance: ATENOLOL
  2. ISOPHANE INSULIN [Concomitant]
     Active Substance: INSULIN NOS
  3. FORXIGA [Suspect]
     Active Substance: DAPAGLIFLOZIN
     Indication: DIABETES MELLITUS
     Dosage: EVERY DAY
     Route: 048
     Dates: end: 20161014

REACTIONS (4)
  - Muscle spasms [Recovered/Resolved]
  - Musculoskeletal stiffness [Unknown]
  - Fatigue [Unknown]
  - Headache [Unknown]

NARRATIVE: CASE EVENT DATE: 2015
